FAERS Safety Report 15567228 (Version 1)
Quarter: 2018Q4

REPORT INFORMATION
  Report Type: Spontaneous
  Country: CH (occurrence: CH)
  Receive Date: 20181030
  Receipt Date: 20181030
  Transmission Date: 20190205
  Serious: Yes (Death, Life-Threatening, Hospitalization, Other)
  Sender: FDA-Public Use
  Company Number: CH-TEVA-2018-CH-969713

PATIENT
  Age: 72 Year
  Sex: Male

DRUGS (15)
  1. DEXDOR [Concomitant]
     Active Substance: DEXMEDETOMIDINE HYDROCHLORIDE
     Dates: end: 20181008
  2. RIVOTRIL [Concomitant]
     Active Substance: CLONAZEPAM
     Dates: end: 20181008
  3. ESCITALOPRAM [Concomitant]
     Active Substance: ESCITALOPRAM OXALATE
     Dates: end: 20181008
  4. NORADRENALIN [Concomitant]
     Active Substance: NOREPINEPHRINE\NOREPINEPHRINE BITARTRATE
     Dates: end: 20181008
  5. KEFZOL [Suspect]
     Active Substance: CEFAZOLIN SODIUM
     Route: 042
     Dates: start: 20180927, end: 20181008
  6. AMOXICILLIN AND CLAVULANATE POTASSIUM [Suspect]
     Active Substance: AMOXICILLIN\CLAVULANATE POTASSIUM
     Dosage: SPECIFIC PREPARATION UNKNOWN
     Route: 042
     Dates: start: 20180921, end: 20180928
  7. QUETIAPIN [Concomitant]
     Active Substance: QUETIAPINE
     Dates: end: 20181008
  8. DOBUTREX [Concomitant]
     Active Substance: DOBUTAMINE HYDROCHLORIDE
     Dates: end: 20181008
  9. IMPORTAL [Concomitant]
     Active Substance: LACTITOL
     Dates: end: 20181008
  10. DIPIPERON [Concomitant]
     Active Substance: PIPAMPERONE
     Dates: end: 20181008
  11. PROPOFOL. [Concomitant]
     Active Substance: PROPOFOL
     Dates: end: 20181008
  12. KEFZOL [Suspect]
     Active Substance: CEFAZOLIN SODIUM
     Indication: SEPTIC SHOCK
     Route: 042
     Dates: start: 20180918, end: 20180921
  13. TOREM [Concomitant]
     Active Substance: TORSEMIDE
     Dates: end: 20181008
  14. KEPPRA [Concomitant]
     Active Substance: LEVETIRACETAM
     Dates: end: 20181008
  15. LASIX [Concomitant]
     Active Substance: FUROSEMIDE
     Dates: end: 20181008

REACTIONS (3)
  - Disturbance in attention [Fatal]
  - Myoclonus [Fatal]
  - Status epilepticus [Fatal]

NARRATIVE: CASE EVENT DATE: 201809
